FAERS Safety Report 8828584 (Version 2)
Quarter: 2015Q3

REPORT INFORMATION
  Report Type: Report from Study
  Country: US (occurrence: US)
  Receive Date: 20121005
  Receipt Date: 20150713
  Transmission Date: 20151125
  Serious: Yes (Death)
  Sender: FDA-Public Use
  Company Number: US-ROCHE-1130807

PATIENT
  Sex: Male

DRUGS (12)
  1. ENBREL [Concomitant]
     Active Substance: ETANERCEPT
  2. HUMIRA [Concomitant]
     Active Substance: ADALIMUMAB
  3. HYDROXYCHLOROQUINE [Concomitant]
     Active Substance: HYDROXYCHLOROQUINE
  4. METHOTREXATE [Concomitant]
     Active Substance: METHOTREXATE
  5. KINERET [Concomitant]
     Active Substance: ANAKINRA
  6. RITUXAN [Suspect]
     Active Substance: RITUXIMAB
     Indication: OFF LABEL USE
  7. SULFASALAZINE. [Concomitant]
     Active Substance: SULFASALAZINE
  8. REMICADE [Concomitant]
     Active Substance: INFLIXIMAB
  9. RITUXAN [Suspect]
     Active Substance: RITUXIMAB
     Indication: LYMPHOMA
  10. LEFLUNOMIDE. [Concomitant]
     Active Substance: LEFLUNOMIDE
  11. RITUXAN [Suspect]
     Active Substance: RITUXIMAB
     Indication: MALIGNANT LYMPHOID NEOPLASM
     Route: 042
     Dates: start: 20020410
  12. ORENCIA [Concomitant]
     Active Substance: ABATACEPT

REACTIONS (2)
  - Death [Fatal]
  - Off label use [Unknown]
